FAERS Safety Report 23298668 (Version 2)
Quarter: 2023Q4

REPORT INFORMATION
  Report Type: Spontaneous
  Country: US (occurrence: US)
  Receive Date: 20231214
  Receipt Date: 20231220
  Transmission Date: 20240110
  Serious: Yes (Hospitalization, Other)
  Sender: FDA-Public Use
  Company Number: US-862174955-ML2023-07158

PATIENT
  Age: 15 Year
  Sex: Male

DRUGS (10)
  1. FLUOXETINE [Suspect]
     Active Substance: FLUOXETINE HYDROCHLORIDE
     Indication: Schizophrenia
     Dosage: 40 MG IN THE MORNING, 20 MG IN THE EVENING
  2. FLUOXETINE [Suspect]
     Active Substance: FLUOXETINE HYDROCHLORIDE
     Dosage: DECREASED TO 40 MG DAILY, DAY 5
  3. CLOZAPINE [Suspect]
     Active Substance: CLOZAPINE
     Indication: Schizophrenia
     Dosage: 200 MG IN THE MORNING, 100 MG IN THE AFTERNOON, 250 MG IN THE EVENING. TOTAL DAILY DOSE OF 550 MG (P
  4. CLOZAPINE [Suspect]
     Active Substance: CLOZAPINE
     Dosage: ON DAY 1, 200MG IN THE MORNING GIVEN, OTHER DOSES HELD
  5. CLOZAPINE [Suspect]
     Active Substance: CLOZAPINE
     Dosage: DECREASED TO 100 MG IN THE MORNING AND 200 MG IN THE EVENING, DAY 2
  6. CLOZAPINE [Suspect]
     Active Substance: CLOZAPINE
     Dosage: ON DAY 4,CLOZAPINE DECREASED TO 100 MG IN THE MORNING AND 50 MG IN THE EVENING
  7. CLOZAPINE [Suspect]
     Active Substance: CLOZAPINE
     Dosage: ON DAY 5, CLOZAPINE WAS DECREASED TO 50 MG TWICE DAILY
  8. CLOZAPINE [Suspect]
     Active Substance: CLOZAPINE
     Dosage: ON DAY 6, CLOZAPINE WAS INCREASED TO 100 MG TWICE DAILY
  9. ZIPRASIDONE [Suspect]
     Active Substance: ZIPRASIDONE
     Indication: Schizophrenia
     Dosage: 40 MG TWICE A DAY
  10. ZIPRASIDONE [Suspect]
     Active Substance: ZIPRASIDONE
     Dosage: DECREASED FROM 40 MG BID TO 20 MG BID

REACTIONS (4)
  - Malignant catatonia [Recovered/Resolved]
  - Delirium [Recovered/Resolved]
  - Antipsychotic drug level increased [Recovered/Resolved]
  - Drug interaction [Recovered/Resolved]
